FAERS Safety Report 10359867 (Version 1)
Quarter: 2014Q3

REPORT INFORMATION
  Report Type: Spontaneous
  Country: FR (occurrence: FR)
  Receive Date: 20140804
  Receipt Date: 20140804
  Transmission Date: 20150326
  Serious: Yes (Hospitalization, Other)
  Sender: FDA-Public Use
  Company Number: FR-PFIZER INC-2014210363

PATIENT
  Age: 10 Year
  Sex: Male
  Weight: 38 kg

DRUGS (2)
  1. ADVIL [Suspect]
     Active Substance: IBUPROFEN
     Indication: PHARYNGITIS
     Dosage: 1 DF, AS NEEDED
     Route: 048
     Dates: start: 20140625, end: 20140704
  2. ADVIL [Suspect]
     Active Substance: IBUPROFEN
     Indication: HEADACHE

REACTIONS (3)
  - Renal failure acute [Recovered/Resolved]
  - Loss of consciousness [Unknown]
  - Encephalitis [Unknown]

NARRATIVE: CASE EVENT DATE: 20140705
